FAERS Safety Report 16461510 (Version 1)
Quarter: 2019Q2

REPORT INFORMATION
  Report Type: Spontaneous
  Country: DE (occurrence: DE)
  Receive Date: 20190621
  Receipt Date: 20190621
  Transmission Date: 20190711
  Serious: Yes (Disabling)
  Sender: FDA-Public Use
  Company Number: DE-009507513-1906DEU007646

PATIENT
  Sex: Female
  Weight: 125 kg

DRUGS (1)
  1. JANUVIA [Suspect]
     Active Substance: SITAGLIPTIN PHOSPHATE
     Dosage: 100 MILLIGRAM, UNK
     Route: 048

REACTIONS (6)
  - Hypokinesia [Unknown]
  - Bedridden [Unknown]
  - Oliguria [Unknown]
  - Myalgia [Unknown]
  - Arthralgia [Unknown]
  - Urinary incontinence [Unknown]
